FAERS Safety Report 25089133 (Version 1)
Quarter: 2025Q1

REPORT INFORMATION
  Report Type: Spontaneous
  Country: US (occurrence: None)
  Receive Date: 20250317
  Receipt Date: 20250317
  Transmission Date: 20250409
  Serious: Yes (Hospitalization)
  Sender: FDA-CTU
  Company Number: None

PATIENT
  Sex: Female

DRUGS (9)
  1. VIOKACE [Suspect]
     Active Substance: PANCRELIPASE AMYLASE\PANCRELIPASE LIPASE\PANCRELIPASE PROTEASE
     Indication: Product used for unknown indication
     Route: 048
  2. EPIDIOLEX [Concomitant]
     Active Substance: CANNABIDIOL
  3. FIBER POWDER [Concomitant]
  4. GABAPENTIN [Concomitant]
     Active Substance: GABAPENTIN
  5. IMODIUM A-D [Suspect]
     Active Substance: LOPERAMIDE HYDROCHLORIDE
  6. LACOSAMIDE [Concomitant]
     Active Substance: LACOSAMIDE
  7. LOMOIL [Concomitant]
  8. ONFI [Concomitant]
     Active Substance: CLOBAZAM
  9. URSODIOL [Concomitant]
     Active Substance: URSODIOL

REACTIONS (2)
  - Diarrhoea [None]
  - Pancreatic disorder [None]
